FAERS Safety Report 21291799 (Version 2)
Quarter: 2022Q4

REPORT INFORMATION
  Report Type: Report from Study
  Country: US (occurrence: US)
  Receive Date: 20220903
  Receipt Date: 20221006
  Transmission Date: 20230112
  Serious: Yes (Hospitalization, Other)
  Sender: FDA-Public Use
  Company Number: US-ABBVIE-22K-163-4525270-00

PATIENT
  Sex: Female
  Weight: 94.347 kg

DRUGS (7)
  1. HUMIRA [Suspect]
     Active Substance: ADALIMUMAB
     Indication: Rheumatoid arthritis
     Route: 058
     Dates: start: 2015, end: 2015
  2. RINVOQ [Suspect]
     Active Substance: UPADACITINIB
     Indication: Rheumatoid arthritis
     Dosage: 15 MILLIGRAM
     Route: 048
     Dates: start: 2019
  3. NOVOLOG [Concomitant]
     Active Substance: INSULIN ASPART
     Indication: Diabetes mellitus
  4. METFORMIN [Concomitant]
     Active Substance: METFORMIN HYDROCHLORIDE
     Indication: Diabetes mellitus
  5. PFIZER-BIONTECH COVID-19 VACCINE [Concomitant]
     Active Substance: TOZINAMERAN
     Indication: COVID-19 immunisation
     Dosage: ONE IN ONCE
     Route: 030
     Dates: start: 2022, end: 2022
  6. LANTUS [Concomitant]
     Active Substance: INSULIN GLARGINE
     Indication: Diabetes mellitus
  7. KEPPRA [Concomitant]
     Active Substance: LEVETIRACETAM
     Indication: Seizure

REACTIONS (17)
  - Hip arthroplasty [Unknown]
  - Seizure [Unknown]
  - Motor dysfunction [Not Recovered/Not Resolved]
  - Brain injury [Recovered/Resolved]
  - Communication disorder [Not Recovered/Not Resolved]
  - Amnesia [Not Recovered/Not Resolved]
  - Seizure [Not Recovered/Not Resolved]
  - Joint dislocation [Unknown]
  - Hydrocephalus [Recovered/Resolved]
  - COVID-19 [Recovered/Resolved]
  - Weight decreased [Recovered/Resolved]
  - Arthropathy [Not Recovered/Not Resolved]
  - Cerebrospinal fluid leakage [Recovered/Resolved]
  - Therapeutic product effect incomplete [Unknown]
  - Arthropathy [Unknown]
  - Joint destruction [Not Recovered/Not Resolved]
  - Metabolic surgery [Unknown]

NARRATIVE: CASE EVENT DATE: 20100101
